FAERS Safety Report 20139928 (Version 1)
Quarter: 2021Q4

REPORT INFORMATION
  Report Type: Spontaneous
  Country: US (occurrence: US)
  Receive Date: 20211202
  Receipt Date: 20211202
  Transmission Date: 20220303
  Serious: Yes (Hospitalization)
  Sender: FDA-Public Use
  Company Number: US-MYLANLABS-2021M1089022

PATIENT
  Age: 34 Year
  Sex: Female

DRUGS (9)
  1. ACETYLCYSTEINE [Suspect]
     Active Substance: ACETYLCYSTEINE
     Indication: Liver injury
     Dosage: UNK
     Route: 042
  2. ACETYLCYSTEINE [Suspect]
     Active Substance: ACETYLCYSTEINE
     Indication: Mycotoxicosis
  3. ACETYLCYSTEINE [Suspect]
     Active Substance: ACETYLCYSTEINE
     Indication: Food poisoning
  4. ASCORBIC ACID [Suspect]
     Active Substance: ASCORBIC ACID
     Indication: Liver injury
     Dosage: RECEIVED HIGH DOSE ASCORBIC-ACID
     Route: 065
  5. ASCORBIC ACID [Suspect]
     Active Substance: ASCORBIC ACID
     Indication: Mycotoxicosis
  6. ASCORBIC ACID [Suspect]
     Active Substance: ASCORBIC ACID
     Indication: Food poisoning
  7. PENICILLIN G [Suspect]
     Active Substance: PENICILLIN G
     Indication: Liver injury
     Dosage: UNK
     Route: 065
  8. PENICILLIN G [Suspect]
     Active Substance: PENICILLIN G
     Indication: Mycotoxicosis
  9. PENICILLIN G [Suspect]
     Active Substance: PENICILLIN G
     Indication: Food poisoning

REACTIONS (2)
  - Drug ineffective for unapproved indication [Unknown]
  - Off label use [Unknown]
